FAERS Safety Report 4327226-X (Version None)
Quarter: 2004Q1

REPORT INFORMATION
  Report Type: 
  Country: None (occurrence: None)
  Receive Date: 20040330
  Receipt Date: 20040323
  Transmission Date: 20041129
  Serious: Yes (Hospitalization)
  Sender: FDA-Public Use
  Company Number: DE-BRISTOL-MYERS SQUIBB COMPANY-12540233

PATIENT
  Age: 76 Year
  Sex: Female
  Weight: 64 kg

DRUGS (5)
  1. TAXOL [Suspect]
     Indication: OVARIAN CANCER
     Route: 042
     Dates: start: 20040217, end: 20040217
  2. RIBOCARBO [Suspect]
     Indication: OVARIAN CANCER
     Dosage: THERAPY DATES: 06-JAN-2004 TO 17-FEB-2004
     Route: 042
     Dates: start: 20040217, end: 20040217
  3. GEMZAR [Suspect]
     Indication: OVARIAN CANCER
     Dosage: THERAPY START DATE: 06-JAN-2004; PT REFUSED FURTHER DOSES
     Route: 042
     Dates: start: 20040106, end: 20040106
  4. MOVICOL [Concomitant]
     Indication: CONSTIPATION
     Dates: start: 20040127
  5. ZOFRAN [Concomitant]
     Indication: NAUSEA
     Dates: start: 20040106

REACTIONS (1)
  - CONSTIPATION [None]
